FAERS Safety Report 9997225 (Version 1)
Quarter: 2014Q1

REPORT INFORMATION
  Report Type: Spontaneous
  Country: US (occurrence: None)
  Receive Date: 20140218
  Receipt Date: 20140218
  Transmission Date: 20141002
  Serious: No
  Sender: FDA-Public Use
  Company Number: 1000052320

PATIENT
  Age: 50 Year
  Sex: Female

DRUGS (2)
  1. VIIBRYD (VILAZODONE HYDROCHLORIDE) (10 MILLIGRAM, TABLETS) [Suspect]
     Indication: DEPRESSION
     Route: 048
     Dates: start: 20131204, end: 20131210
  2. IBUPROFEN (IBUPROFEN) (IBUPROFEN) [Concomitant]

REACTIONS (2)
  - Hot flush [None]
  - Burning sensation [None]
